FAERS Safety Report 7415007-X (Version None)
Quarter: 2011Q2

REPORT INFORMATION
  Report Type: 
  Country: None (occurrence: None)
  Receive Date: 20110414
  Receipt Date: 20110405
  Transmission Date: 20111010
  Serious: Yes (Disabling, Other)
  Sender: FDA-Public Use
  Company Number: US-ROCHE-746275

PATIENT
  Sex: Male
  Weight: 68.5 kg

DRUGS (4)
  1. ZITHROMYCIN [Concomitant]
     Indication: BRONCHITIS
     Route: 048
     Dates: start: 20101014, end: 20101019
  2. TAMIFLU [Suspect]
     Route: 048
     Dates: start: 20101014, end: 20101019
  3. AMOXICILLIN [Suspect]
     Route: 065
  4. PHENERGAN VC W/ CODEINE [Concomitant]
     Indication: COUGH
     Route: 048
     Dates: start: 20101014, end: 20101019

REACTIONS (8)
  - TACHYCARDIA [None]
  - SEPSIS [None]
  - RENAL FAILURE [None]
  - OEDEMA [None]
  - CARDIAC FAILURE CONGESTIVE [None]
  - ANAEMIA [None]
  - HEPATITIS C [None]
  - DIABETES MELLITUS [None]
